FAERS Safety Report 7728902-9 (Version None)
Quarter: 2011Q3

REPORT INFORMATION
  Report Type: 
  Country: None (occurrence: None)
  Receive Date: 20110831
  Receipt Date: 20110831
  Transmission Date: 20111222
  Serious: Yes (Hospitalization, Other)
  Sender: FDA-Public Use
  Company Number: None

PATIENT
  Age: 63 Year
  Sex: Male
  Weight: 75.9 kg

DRUGS (1)
  1. IODIXANOL [Suspect]
     Indication: ANGIOGRAM
     Dosage: 170 MG ONCE IV
     Route: 042
     Dates: start: 20110816, end: 20110816

REACTIONS (5)
  - HYPOTENSION [None]
  - DIZZINESS [None]
  - ERYTHEMA [None]
  - FLUSHING [None]
  - ANAPHYLACTIC REACTION [None]
